FAERS Safety Report 9984655 (Version 1)
Quarter: 2014Q1

REPORT INFORMATION
  Report Type: Spontaneous
  Country: US (occurrence: US)
  Receive Date: 20140307
  Receipt Date: 20140307
  Transmission Date: 20141002
  Serious: No
  Sender: FDA-Public Use
  Company Number: US-GLAXOSMITHKLINE-A1056579A

PATIENT
  Age: 53 Year
  Sex: Female

DRUGS (6)
  1. BREO ELLIPTA [Suspect]
     Indication: CHRONIC OBSTRUCTIVE PULMONARY DISEASE
     Dosage: 1PUFF PER DAY
     Route: 055
     Dates: start: 20131213, end: 20140110
  2. TRANDOLAPRIL [Concomitant]
  3. FENOFIBRATE [Concomitant]
  4. VERAPAMIL [Concomitant]
  5. SINGULAIR [Concomitant]
  6. XANAX [Concomitant]

REACTIONS (6)
  - Sputum increased [Recovering/Resolving]
  - Cough [Recovering/Resolving]
  - Anxiety [Recovering/Resolving]
  - Tremor [Recovering/Resolving]
  - Chills [Recovering/Resolving]
  - Adverse drug reaction [Recovering/Resolving]
